FAERS Safety Report 5161058-8 (Version None)
Quarter: 2006Q4

REPORT INFORMATION
  Report Type: 
  Country: None (occurrence: None)
  Receive Date: 20061121
  Receipt Date: 20061110
  Transmission Date: 20070319
  Serious: Yes (Hospitalization)
  Sender: FDA-Public Use
  Company Number: E2090-00130-SPO-US

PATIENT
  Age: 9 Month
  Sex: Male

DRUGS (1)
  1. ZONEGRAN [Suspect]
     Indication: EPILEPSY
     Dosage: 90 MG, 2 IN 1 D, ORAL
     Route: 048
     Dates: start: 20060101

REACTIONS (4)
  - HYPERHIDROSIS [None]
  - IRRITABILITY [None]
  - MUSCLE RIGIDITY [None]
  - NEUROLEPTIC MALIGNANT SYNDROME [None]
